FAERS Safety Report 23839746 (Version 2)
Quarter: 2024Q2

REPORT INFORMATION
  Report Type: Spontaneous
  Country: US (occurrence: US)
  Receive Date: 20240510
  Receipt Date: 20240609
  Transmission Date: 20240717
  Serious: No
  Sender: FDA-Public Use
  Company Number: US-BoehringerIngelheim-2024-BI-026622

PATIENT
  Age: 71 Year
  Sex: Female

DRUGS (2)
  1. SPIRIVA HANDIHALER [Suspect]
     Active Substance: TIOTROPIUM BROMIDE MONOHYDRATE
     Indication: Product used for unknown indication
  2. ALBUTEROL [Concomitant]
     Active Substance: ALBUTEROL
     Indication: Product used for unknown indication

REACTIONS (3)
  - Amnesia [Not Recovered/Not Resolved]
  - Intentional product use issue [Unknown]
  - Product physical issue [Unknown]
